FAERS Safety Report 16514168 (Version 5)
Quarter: 2019Q3

REPORT INFORMATION
  Report Type: Spontaneous
  Country: US (occurrence: US)
  Receive Date: 20190701
  Receipt Date: 20190923
  Transmission Date: 20191004
  Serious: No
  Sender: FDA-Public Use
  Company Number: US-009507513-1906USA009278

PATIENT
  Age: 30 Year
  Sex: Female

DRUGS (2)
  1. NEXPLANON [Suspect]
     Active Substance: ETONOGESTREL
     Indication: CONTRACEPTION
     Dosage: 3 YEARS IMPLANT, LEFT ARM
     Dates: start: 20190312
  2. LIDOCAINE. [Concomitant]
     Active Substance: LIDOCAINE

REACTIONS (16)
  - Superovulation [Not Recovered/Not Resolved]
  - Device deployment issue [Not Recovered/Not Resolved]
  - Nausea [Unknown]
  - Pain [Unknown]
  - Mood swings [Not Recovered/Not Resolved]
  - Breast tenderness [Not Recovered/Not Resolved]
  - Adnexa uteri pain [Not Recovered/Not Resolved]
  - Dyspepsia [Unknown]
  - Nipple pain [Not Recovered/Not Resolved]
  - Weight increased [Not Recovered/Not Resolved]
  - Dysgeusia [Not Recovered/Not Resolved]
  - Amenorrhoea [Not Recovered/Not Resolved]
  - Hormone level abnormal [Unknown]
  - Pain in extremity [Unknown]
  - Circumstance or information capable of leading to device use error [Unknown]
  - Device kink [Not Recovered/Not Resolved]

NARRATIVE: CASE EVENT DATE: 2019
